FAERS Safety Report 6146958-4 (Version None)
Quarter: 2009Q2

REPORT INFORMATION
  Report Type: 
  Country: None (occurrence: None)
  Receive Date: 20090403
  Receipt Date: 20090326
  Transmission Date: 20091009
  Serious: Yes (Other)
  Sender: FDA-Public Use
  Company Number: 041480

PATIENT
  Age: 62 Year
  Sex: Female
  Weight: 76 kg

DRUGS (3)
  1. BISOPROLOL FUMARATE [Suspect]
     Indication: HYPERTENSION
     Dosage: 20 MG (4 IN 1 D)
     Dates: start: 20090128, end: 20090205
  2. AMITRIPTLINE HYDROCHLORIDE TAB [Concomitant]
  3. OMEPRAZOLE [Concomitant]

REACTIONS (5)
  - ANXIETY [None]
  - DRUG INEFFECTIVE [None]
  - HYPERTENSION [None]
  - PALPITATIONS [None]
  - PRODUCT COUNTERFEIT [None]
